FAERS Safety Report 23310116 (Version 1)
Quarter: 2023Q4

REPORT INFORMATION
  Report Type: Report from Study
  Country: HK (occurrence: None)
  Receive Date: 20231218
  Receipt Date: 20231218
  Transmission Date: 20240110
  Serious: Yes (Life-Threatening)
  Sender: FDA-Public Use
  Company Number: 2023A283826

PATIENT
  Age: 57 Year
  Sex: Male
  Weight: 57 kg

DRUGS (7)
  1. CILGAVIMAB\TIXAGEVIMAB [Suspect]
     Active Substance: CILGAVIMAB\TIXAGEVIMAB
     Indication: COVID-19
     Dosage: 600 MG ONCE/SINGLE ADMINISTRATION
     Route: 030
     Dates: start: 20221213, end: 20221213
  2. SEVELAMER CARBONATE [Concomitant]
     Active Substance: SEVELAMER CARBONATE
     Indication: End stage renal disease
     Dosage: AS NEEDED
     Route: 048
     Dates: start: 20211229
  3. POTASSIUM CHLORIDE SUSTAINED RELEASE TABLET [Concomitant]
     Indication: Supplementary motor area syndrome
     Dosage: AS NEEDED
     Route: 048
     Dates: start: 20220404
  4. FUROSEMIDE [Concomitant]
     Active Substance: FUROSEMIDE
     Indication: Hypertension
     Dosage: AS NEEDED
     Route: 048
     Dates: start: 20211229
  5. FAMOTIDINE [Concomitant]
     Active Substance: FAMOTIDINE
     Indication: Prophylaxis
     Dosage: 40MG
     Route: 048
     Dates: start: 20211229
  6. LOSARTAN POTASSIUM [Concomitant]
     Active Substance: LOSARTAN POTASSIUM
     Indication: Hypertension
     Dosage: 20 MG
     Route: 048
     Dates: start: 20220408
  7. CALCITRIOL [Concomitant]
     Active Substance: CALCITRIOL
     Indication: Supplementary motor area syndrome
     Dosage: 0.25MCG ONCE PER DAY (ALTERNATE DAYS)
     Route: 048
     Dates: start: 20230707

REACTIONS (1)
  - COVID-19 [Recovered/Resolved]

NARRATIVE: CASE EVENT DATE: 20230924
